FAERS Safety Report 15362311 (Version 1)
Quarter: 2018Q3

REPORT INFORMATION
  Report Type: Spontaneous
  Country: FR (occurrence: FR)
  Receive Date: 20180907
  Receipt Date: 20180907
  Transmission Date: 20181010
  Serious: Yes (Life-Threatening)
  Sender: FDA-Public Use
  Company Number: FR-ASTRAZENECA-2018SF10768

PATIENT
  Age: 53 Year
  Sex: Male

DRUGS (7)
  1. KEPPRA [Concomitant]
     Active Substance: LEVETIRACETAM
  2. NOVORAPID [Concomitant]
     Active Substance: INSULIN ASPART
  3. DEXAMETHASONE. [Concomitant]
     Active Substance: DEXAMETHASONE
     Dosage: 40.0MG UNKNOWN
  4. METHOTREXATE. [Suspect]
     Active Substance: METHOTREXATE
     Indication: B-CELL LYMPHOMA
     Dosage: 6000.0MG UNKNOWN
     Route: 042
     Dates: start: 20180817, end: 20180817
  5. ZOPHREN [Concomitant]
     Active Substance: ONDANSETRON
  6. INEXIUM [Suspect]
     Active Substance: ESOMEPRAZOLE
     Route: 042
     Dates: start: 20180729
  7. SKENAN [Concomitant]
     Active Substance: MORPHINE SULFATE

REACTIONS (2)
  - Coma [Not Recovered/Not Resolved]
  - Overdose [Not Recovered/Not Resolved]

NARRATIVE: CASE EVENT DATE: 20180817
